FAERS Safety Report 16144678 (Version 1)
Quarter: 2019Q2

REPORT INFORMATION
  Report Type: Spontaneous
  Country: US (occurrence: US)
  Receive Date: 20190401
  Receipt Date: 20190401
  Transmission Date: 20190711
  Serious: Yes (Other)
  Sender: FDA-Public Use
  Company Number: None

PATIENT
  Age: 69 Year
  Sex: Female
  Weight: 75.3 kg

DRUGS (19)
  1. HYDROCODONE/ACETAMINOPHEN 10/325 [Concomitant]
     Active Substance: ACETAMINOPHEN\HYDROCODONE
  2. MULTIVITAMIN [Concomitant]
     Active Substance: VITAMINS
  3. SUBLINGUAL NITROGLYCERIN 0.4MG [Concomitant]
  4. POLYETHYLENE GLYCOL 17GM [Concomitant]
  5. VINORELBINE [Suspect]
     Active Substance: VINORELBINE\VINORELBINE TARTRATE
     Indication: BREAST CANCER
     Dosage: ?          OTHER FREQUENCY:DAYS 1, 8, 21;?
     Route: 041
     Dates: start: 20190321, end: 20190321
  6. LORATADINE 10MG [Concomitant]
     Active Substance: LORATADINE
  7. ONDANSETRON 8MG [Concomitant]
     Active Substance: ONDANSETRON
  8. VENLAFAXINE XR 37.5MG [Concomitant]
     Active Substance: VENLAFAXINE HYDROCHLORIDE
  9. MAGNESIUM OXIDE 400MG [Concomitant]
     Active Substance: MAGNESIUM OXIDE
  10. VINORELBINE [Suspect]
     Active Substance: VINORELBINE\VINORELBINE TARTRATE
     Indication: LUNG NEOPLASM MALIGNANT
     Dosage: ?          OTHER FREQUENCY:DAYS 1, 8, 21;?
     Route: 041
     Dates: start: 20190321, end: 20190321
  11. ACYCLOVIR 400MG [Concomitant]
     Active Substance: ACYCLOVIR
  12. ALBUTEROL INHALER [Concomitant]
     Active Substance: ALBUTEROL
  13. LISINOPRIL/HYDROCHLOROTHIAZIDE 20/12.5 [Concomitant]
  14. FUROSEMIDE 20MG [Concomitant]
     Active Substance: FUROSEMIDE
  15. SPIRONOLACTONE 25MG [Concomitant]
     Active Substance: SPIRONOLACTONE
  16. ASPIRIN 81MG [Concomitant]
     Active Substance: ASPIRIN
  17. CALCIUM CARBONATE + VITAMIN D [Concomitant]
  18. MAALOX/DIPHENHYDRAMINE/VISCOUS LIDOCAINE 2% 1/1/1 [Concomitant]
  19. CARVEDILOL 25MG [Concomitant]
     Active Substance: CARVEDILOL

REACTIONS (2)
  - Chest discomfort [None]
  - Chest pain [None]

NARRATIVE: CASE EVENT DATE: 20190321
